FAERS Safety Report 20321562 (Version 1)
Quarter: 2022Q1

REPORT INFORMATION
  Report Type: Spontaneous
  Country: GB (occurrence: GB)
  Receive Date: 20220111
  Receipt Date: 20220111
  Transmission Date: 20220423
  Serious: Yes (Other)
  Sender: FDA-Public Use
  Company Number: GB-LUPIN PHARMACEUTICALS INC.-2021-26693

PATIENT
  Age: 76 Year
  Sex: Female

DRUGS (8)
  1. HYDROXYCHLOROQUINE [Suspect]
     Active Substance: HYDROXYCHLOROQUINE
     Indication: Polychondritis
     Dosage: UNK
     Route: 065
  2. HYDROXYCHLOROQUINE [Suspect]
     Active Substance: HYDROXYCHLOROQUINE
     Indication: Immunosuppressant drug therapy
  3. SULFASALAZINE [Suspect]
     Active Substance: SULFASALAZINE
     Indication: Polychondritis
     Dosage: UNK
     Route: 065
  4. SULFASALAZINE [Suspect]
     Active Substance: SULFASALAZINE
     Indication: Immunosuppressant drug therapy
  5. ABATACEPT [Suspect]
     Active Substance: ABATACEPT
     Indication: Polychondritis
     Dosage: UNK
     Route: 065
  6. ABATACEPT [Suspect]
     Active Substance: ABATACEPT
     Indication: Immunosuppressant drug therapy
  7. PREDNISOLONE [Suspect]
     Active Substance: PREDNISOLONE
     Indication: Polychondritis
     Dosage: 7.5 MILLIGRAM
     Route: 065
  8. PREDNISOLONE [Suspect]
     Active Substance: PREDNISOLONE
     Indication: Immunosuppressant drug therapy

REACTIONS (1)
  - Hypogammaglobulinaemia [Unknown]
